FAERS Safety Report 18953138 (Version 3)
Quarter: 2022Q3

REPORT INFORMATION
  Report Type: Report from Study
  Country: US (occurrence: US)
  Receive Date: 20210301
  Receipt Date: 20220812
  Transmission Date: 20221026
  Serious: Yes (Hospitalization)
  Sender: FDA-Public Use
  Company Number: US-TAKEDA-2021TUS012708

PATIENT
  Sex: Female
  Weight: 63 kg

DRUGS (25)
  1. HUMAN IMMUNOGLOBULIN G [Suspect]
     Active Substance: HUMAN IMMUNOGLOBULIN G
     Indication: Chronic inflammatory demyelinating polyradiculoneuropathy
     Dosage: 40 GRAM, Q3WEEKS
     Route: 042
     Dates: start: 20190626
  2. HUMAN IMMUNOGLOBULIN G [Suspect]
     Active Substance: HUMAN IMMUNOGLOBULIN G
     Dosage: 40 GRAM, Q4WEEKS
     Route: 042
     Dates: start: 20190626
  3. ACETAMINOPHEN [Concomitant]
     Active Substance: ACETAMINOPHEN
  4. DIPHENHYDRAMINE [Concomitant]
     Active Substance: DIPHENHYDRAMINE
  5. SODIUM CHLORIDE [Concomitant]
     Active Substance: SODIUM CHLORIDE
  6. EPINEPHRINE [Concomitant]
     Active Substance: EPINEPHRINE
  7. LYSINE [Concomitant]
     Active Substance: LYSINE
  8. PREDNISONE [Concomitant]
     Active Substance: PREDNISONE
  9. PROPRANOLOL [Concomitant]
     Active Substance: PROPRANOLOL HYDROCHLORIDE
  10. TUMS ULTRA [Concomitant]
     Active Substance: CALCIUM CARBONATE
  11. CYANOCOBALAMIN [Concomitant]
     Active Substance: CYANOCOBALAMIN
  12. PROGESTERONE [Concomitant]
     Active Substance: PROGESTERONE
  13. GABAPENTIN [Concomitant]
     Active Substance: GABAPENTIN
  14. DEXILANT [Concomitant]
     Active Substance: DEXLANSOPRAZOLE
  15. VITAMINS [Concomitant]
     Active Substance: VITAMINS
  16. PAROXETINE MESYLATE [Concomitant]
     Active Substance: PAROXETINE MESYLATE
  17. BACLOFEN [Concomitant]
     Active Substance: BACLOFEN
  18. VITAMIN D2 [Concomitant]
     Active Substance: ERGOCALCIFEROL
  19. MINIVELLE [Concomitant]
     Active Substance: ESTRADIOL
  20. ACRIVASTINE [Concomitant]
     Active Substance: ACRIVASTINE
  21. TYLENOL [Concomitant]
     Active Substance: ACETAMINOPHEN
  22. LACTASE [Concomitant]
     Active Substance: LACTASE
     Route: 065
  23. PROPRANOLOL HYDROCHLORIDE [Concomitant]
     Active Substance: PROPRANOLOL HYDROCHLORIDE
  24. ZOFRAN [Concomitant]
     Active Substance: ONDANSETRON HYDROCHLORIDE
  25. VITAMIN D [Concomitant]
     Active Substance: VITAMIN D NOS

REACTIONS (4)
  - Central venous catheterisation [Unknown]
  - Appendix disorder [Unknown]
  - Weight decreased [Unknown]
  - Rash [Unknown]
